FAERS Safety Report 5925489-8 (Version None)
Quarter: 2008Q4

REPORT INFORMATION
  Report Type: 
  Country: None (occurrence: None)
  Receive Date: 20081021
  Receipt Date: 20081009
  Transmission Date: 20090506
  Serious: Yes (Hospitalization)
  Sender: FDA-Public Use
  Company Number: PHHY2008JP22972

PATIENT
  Age: 71 Year
  Sex: Female

DRUGS (1)
  1. LAMISIL [Suspect]
     Dosage: 125 MG/DAY
     Route: 048
     Dates: end: 20080920

REACTIONS (3)
  - INFLAMMATION [None]
  - SURGERY [None]
  - WHITE BLOOD CELL COUNT DECREASED [None]
